FAERS Safety Report 6020263-9 (Version None)
Quarter: 2008Q4

REPORT INFORMATION
  Report Type: 
  Country: None (occurrence: None)
  Receive Date: 20081226
  Receipt Date: 20081218
  Transmission Date: 20090506
  Serious: Yes (Hospitalization)
  Sender: FDA-Public Use
  Company Number: PHHY2008JP28794

PATIENT
  Sex: Female
  Weight: 47 kg

DRUGS (3)
  1. METOPIRONE [Suspect]
     Indication: ACTH STIMULATION TEST
     Dosage: 250 MG 6 CAPSULES A DAY
     Route: 048
     Dates: start: 20080922, end: 20081023
  2. METOPIRONE [Suspect]
     Indication: ACTH-PRODUCING PITUITARY TUMOUR
  3. LAXOBERON [Concomitant]
     Route: 048

REACTIONS (6)
  - ADRENAL INSUFFICIENCY [None]
  - BLOOD PRESSURE SYSTOLIC DECREASED [None]
  - PSYCHIATRIC SYMPTOM [None]
  - PSYCHOTIC DISORDER [None]
  - PYREXIA [None]
  - STUPOR [None]
